FAERS Safety Report 16089371 (Version 1)
Quarter: 2019Q2

REPORT INFORMATION
  Report Type: Spontaneous
  Country: US (occurrence: US)
  Receive Date: 20190319
  Receipt Date: 20190319
  Transmission Date: 20190711
  Serious: Yes (Other)
  Sender: FDA-Public Use
  Company Number: None

PATIENT
  Age: 65 Year
  Sex: Female
  Weight: 62.1 kg

DRUGS (1)
  1. PROLIA [Suspect]
     Active Substance: DENOSUMAB
     Indication: OSTEOPOROSIS
     Dosage: 60 MG/MG Q 6 MONTHS SUBCUTANEOUS
     Route: 058
     Dates: start: 20180702

REACTIONS (5)
  - Back pain [None]
  - Hypocalcaemia [None]
  - Pain [None]
  - Fall [None]
  - Gastrointestinal disorder [None]

NARRATIVE: CASE EVENT DATE: 20181221
